FAERS Safety Report 22925430 (Version 2)
Quarter: 2023Q4

REPORT INFORMATION
  Report Type: Report from Study
  Country: JP (occurrence: None)
  Receive Date: 20230908
  Receipt Date: 20231012
  Transmission Date: 20240109
  Serious: Yes (Hospitalization)
  Sender: FDA-Public Use
  Company Number: 2023A200739

PATIENT
  Age: 54 Year
  Sex: Female

DRUGS (1)
  1. SAPHNELO [Suspect]
     Active Substance: ANIFROLUMAB-FNIA
     Indication: Systemic lupus erythematosus
     Route: 041
     Dates: start: 20230308, end: 20230503

REACTIONS (1)
  - Mycobacterium marinum infection [Not Recovered/Not Resolved]

NARRATIVE: CASE EVENT DATE: 20230731
